FAERS Safety Report 8076685-8 (Version None)
Quarter: 2012Q1

REPORT INFORMATION
  Report Type: 
  Country: None (occurrence: None)
  Receive Date: 20120127
  Receipt Date: 20120119
  Transmission Date: 20120608
  Serious: Yes (Hospitalization, Other)
  Sender: FDA-Public Use
  Company Number: US-BAYER-2011-036344

PATIENT
  Age: 23 Year
  Sex: Female
  Weight: 72.562 kg

DRUGS (4)
  1. ZITHROMAX [Concomitant]
     Dosage: 500 MG, UNK
     Route: 048
  2. MOTRIN [Concomitant]
     Dosage: 800 MG, UNK
     Route: 048
  3. ROBITUSSIN AC [CODEINE PHOSPHATE,GUAIFENESIN] [Concomitant]
     Route: 048
  4. YASMIN [Suspect]
     Indication: CONTRACEPTION
     Dosage: UNK
     Route: 048
     Dates: start: 20050301, end: 20080501

REACTIONS (11)
  - THROMBOSIS [None]
  - INJURY [None]
  - DYSPNOEA [None]
  - ANXIETY [None]
  - EMOTIONAL DISTRESS [None]
  - GENERAL PHYSICAL HEALTH DETERIORATION [None]
  - CHEST PAIN [None]
  - PAIN IN EXTREMITY [None]
  - PULMONARY EMBOLISM [None]
  - THROMBOPHLEBITIS SUPERFICIAL [None]
  - PAIN [None]
